FAERS Safety Report 5502820-9 (Version None)
Quarter: 2007Q4

REPORT INFORMATION
  Report Type: 
  Country: None (occurrence: None)
  Receive Date: 20071031
  Receipt Date: 20071022
  Transmission Date: 20080405
  Serious: Yes (Other)
  Sender: FDA-Public Use
  Company Number: PHEH2007US06798

PATIENT
  Age: 54 Year
  Sex: Female
  Weight: 73.469 kg

DRUGS (6)
  1. ZELNORM [Suspect]
     Indication: IRRITABLE BOWEL SYNDROME
     Dosage: 6 MG, BID
     Route: 048
     Dates: start: 20020101, end: 20061219
  2. ZELNORM [Suspect]
     Dosage: 12 MG, BID
     Route: 048
     Dates: start: 20061220
  3. PREVACID [Concomitant]
     Indication: GASTROOESOPHAGEAL REFLUX DISEASE
     Dosage: 30 MG QD, OR 30 MG BID
     Route: 048
  4. LEVOTHYROXINE SODIUM [Concomitant]
     Indication: HYPOTHYROIDISM
     Dosage: 0.112 MG, QD
     Route: 048
     Dates: start: 19820101
  5. ECOTRIN [Concomitant]
     Indication: PROPHYLAXIS
  6. VISICOL [Concomitant]
     Indication: CONSTIPATION
     Dosage: UNK, PRN

REACTIONS (22)
  - ARTHRALGIA [None]
  - BLOOD PRESSURE FLUCTUATION [None]
  - CARDIAC DISORDER [None]
  - CEREBROVASCULAR ACCIDENT [None]
  - DRY EYE [None]
  - DRY MOUTH [None]
  - DYSPHAGIA [None]
  - FATIGUE [None]
  - FEELING ABNORMAL [None]
  - FIBROMYALGIA [None]
  - GASTROOESOPHAGEAL REFLUX DISEASE [None]
  - HEADACHE [None]
  - HEART RATE INCREASED [None]
  - HYPERHIDROSIS [None]
  - INSOMNIA [None]
  - MOVEMENT DISORDER [None]
  - NAUSEA [None]
  - NEPHROLITHIASIS [None]
  - PALPITATIONS [None]
  - SWELLING [None]
  - SYSTEMIC LUPUS ERYTHEMATOSUS [None]
  - WEIGHT DECREASED [None]
